FAERS Safety Report 13742332 (Version 5)
Quarter: 2017Q3

REPORT INFORMATION
  Report Type: Report from Study
  Country: US (occurrence: US)
  Receive Date: 20170711
  Receipt Date: 20170908
  Transmission Date: 20171127
  Serious: Yes (Hospitalization, Other)
  Sender: FDA-Public Use
  Company Number: US-ALEXION PHARMACEUTICALS INC-A201707584

PATIENT
  Age: 26 Year
  Sex: Female

DRUGS (3)
  1. SOLIRIS [Suspect]
     Active Substance: ECULIZUMAB
     Dosage: UNK
     Route: 042
  2. SOLIRIS [Suspect]
     Active Substance: ECULIZUMAB
     Indication: HAEMOLYTIC URAEMIC SYNDROME
     Dosage: UNK UNK, Q2W
     Route: 042
  3. SOLIRIS [Suspect]
     Active Substance: ECULIZUMAB
     Dosage: 600 MG, UNK
     Route: 042

REACTIONS (9)
  - Limb injury [Unknown]
  - Extra dose administered [Unknown]
  - Haemorrhage [Unknown]
  - Haemoglobin decreased [Recovering/Resolving]
  - Tibia fracture [Not Recovered/Not Resolved]
  - Pain [Unknown]
  - Injury [Unknown]
  - Road traffic accident [Not Recovered/Not Resolved]
  - Fibula fracture [Unknown]

NARRATIVE: CASE EVENT DATE: 20170702
